FAERS Safety Report 7309189-8 (Version None)
Quarter: 2011Q1

REPORT INFORMATION
  Report Type: 
  Country: None (occurrence: None)
  Receive Date: 20110223
  Receipt Date: 20110214
  Transmission Date: 20110831
  Serious: Yes (Hospitalization)
  Sender: FDA-Public Use
  Company Number: DE-ASTRAZENECA-2010SE46937

PATIENT
  Age: 84 Year
  Sex: Female
  Weight: 55 kg

DRUGS (5)
  1. MOLSIDOMINE [Suspect]
     Indication: ANGINA PECTORIS
     Route: 048
     Dates: start: 20000101
  2. CITALOPRAM [Suspect]
     Indication: DEPRESSION
     Route: 048
     Dates: start: 20100301, end: 20100816
  3. METOPROLOL SUCCINATE [Suspect]
     Indication: HYPERTENSION
     Route: 048
     Dates: start: 20000101
  4. METOPROLOL SUCCINATE [Suspect]
     Route: 048
     Dates: start: 20100904
  5. FALITHROM [Suspect]
     Indication: ATRIAL FIBRILLATION
     Route: 048
     Dates: start: 20100810, end: 20100817

REACTIONS (1)
  - LIVER DISORDER [None]
